FAERS Safety Report 18632583 (Version 1)
Quarter: 2020Q4

REPORT INFORMATION
  Report Type: Spontaneous
  Country: FR (occurrence: FR)
  Receive Date: 20201218
  Receipt Date: 20201218
  Transmission Date: 20210114
  Serious: Yes (Death, Other)
  Sender: FDA-Public Use
  Company Number: FR-ROCHE-2715490

PATIENT
  Age: 69 Year
  Sex: Female
  Weight: 66 kg

DRUGS (6)
  1. XELODA [Suspect]
     Active Substance: CAPECITABINE
     Indication: BREAST CANCER METASTATIC
     Dosage: 3 WEEKS OF TREATMENT AND ONE REST WEEK PERIOD
     Route: 048
     Dates: start: 20190101
  2. XELODA [Suspect]
     Active Substance: CAPECITABINE
     Route: 048
     Dates: start: 20190401, end: 20200601
  3. PRAVASTATIN. [Concomitant]
     Active Substance: PRAVASTATIN
     Indication: HYPERCHOLESTEROLAEMIA
     Dosage: LONG STANDING TREATMENT (FOR MANY YEARS)
     Route: 048
  4. ESOMEPRAZOLE. [Concomitant]
     Active Substance: ESOMEPRAZOLE MAGNESIUM
     Indication: GASTRITIS
     Dosage: LONG STANDING TREATMENT (FOR MANY YEARS)
  5. OXYCONTIN [Concomitant]
     Active Substance: OXYCODONE HYDROCHLORIDE
     Indication: PAIN
     Route: 048
     Dates: start: 20200331
  6. ESCITALOPRAM [Concomitant]
     Active Substance: ESCITALOPRAM OXALATE
     Indication: DEPRESSION
     Route: 048
     Dates: start: 20180306

REACTIONS (6)
  - Infarction [Unknown]
  - Hot flush [Unknown]
  - Ill-defined disorder [Unknown]
  - Loss of consciousness [Not Recovered/Not Resolved]
  - Sudden death [Fatal]
  - Nausea [Unknown]
